FAERS Safety Report 19908356 (Version 1)
Quarter: 2021Q4

REPORT INFORMATION
  Report Type: Spontaneous
  Country: US (occurrence: US)
  Receive Date: 20211002
  Receipt Date: 20211002
  Transmission Date: 20220303
  Serious: No
  Sender: FDA-Public Use
  Company Number: US-GLENMARK PHARMACEUTICALS-2021GMK067138

PATIENT

DRUGS (2)
  1. ESTRADIOL [Suspect]
     Active Substance: ESTRADIOL
     Indication: Product used for unknown indication
     Dosage: UNK, ONCE A DAY FOR 14 DAYS THEN TO DECREASE TO 2X A WEEK
     Route: 067
     Dates: start: 20210630, end: 202107
  2. ESTRADIOL [Suspect]
     Active Substance: ESTRADIOL
     Dosage: UNK, 2X A WEEK (POSSIBLY ANOTHER 14 DAYS)
     Route: 067
     Dates: start: 202107, end: 2021

REACTIONS (2)
  - Pruritus [Unknown]
  - Rash papular [Unknown]

NARRATIVE: CASE EVENT DATE: 20210701
